FAERS Safety Report 10905243 (Version 2)
Quarter: 2017Q3

REPORT INFORMATION
  Report Type: Spontaneous
  Country: AT (occurrence: AT)
  Receive Date: 20150311
  Receipt Date: 20170719
  Transmission Date: 20171127
  Serious: Yes (Other)
  Sender: FDA-Public Use
  Company Number: AT-ASTRAZENECA-2015SE20367

PATIENT
  Sex: Male

DRUGS (1)
  1. XIGDUO XR [Suspect]
     Active Substance: DAPAGLIFLOZIN PROPANEDIOL\METFORMIN HYDROCHLORIDE
     Route: 048
     Dates: start: 201501

REACTIONS (1)
  - Bladder cancer recurrent [Unknown]
